FAERS Safety Report 8985985 (Version 2)
Quarter: 2013Q1

REPORT INFORMATION
  Report Type: Spontaneous
  Country: GB (occurrence: GB)
  Receive Date: 20121226
  Receipt Date: 20130225
  Transmission Date: 20140127
  Serious: Yes (Other)
  Sender: FDA-Public Use
  Company Number: GB-JNJFOC-20121209766

PATIENT
  Age: 16 Year
  Sex: Female
  Weight: 53.6 kg

DRUGS (21)
  1. DOXORUBICIN [Suspect]
     Indication: BONE SARCOMA
     Route: 042
     Dates: start: 20120417, end: 20120419
  2. DOXORUBICIN [Suspect]
     Indication: BONE SARCOMA
     Route: 042
     Dates: start: 20120417, end: 20120419
  3. APREPITANT [Suspect]
     Indication: PROPHYLAXIS OF NAUSEA AND VOMITING
     Route: 048
     Dates: start: 20120417, end: 20120417
  4. APREPITANT [Suspect]
     Indication: PROPHYLAXIS OF NAUSEA AND VOMITING
     Route: 048
     Dates: start: 20120418, end: 20120419
  5. ONDANSETRON [Suspect]
     Indication: PROPHYLAXIS OF NAUSEA AND VOMITING
     Route: 048
     Dates: start: 20120417, end: 20120417
  6. ONDANSETRON [Suspect]
     Indication: PROPHYLAXIS OF NAUSEA AND VOMITING
     Route: 048
     Dates: start: 20120418, end: 20120420
  7. DEXAMETHASONE SODIUM PHOSPHATE [Suspect]
     Indication: PROPHYLAXIS OF NAUSEA AND VOMITING
     Route: 041
     Dates: start: 20120417, end: 20120417
  8. DEXAMETHASONE SODIUM PHOSPHATE [Suspect]
     Indication: PROPHYLAXIS OF NAUSEA AND VOMITING
     Route: 042
     Dates: start: 20120418, end: 20120420
  9. CISPLATIN [Suspect]
     Indication: BONE SARCOMA
     Route: 042
     Dates: start: 20120417, end: 20120420
  10. TETRACAINE [Concomitant]
     Indication: ANALGESIC THERAPY
     Route: 061
     Dates: start: 20120413, end: 20120413
  11. METOCLOPRAMIDE [Concomitant]
     Indication: VOMITING
     Route: 065
     Dates: start: 20120419, end: 20120419
  12. METOCLOPRAMIDE [Concomitant]
     Indication: NAUSEA
     Route: 065
     Dates: start: 20120419, end: 20120419
  13. ACETAMINOPHEN [Concomitant]
     Indication: ANALGESIC THERAPY
     Route: 065
     Dates: start: 20120413, end: 20120418
  14. LACTULOSE [Concomitant]
     Indication: CONSTIPATION
     Route: 065
     Dates: start: 20120418
  15. LACTULOSE [Concomitant]
     Indication: CONSTIPATION
     Route: 065
     Dates: start: 20120419
  16. LACTULOSE [Concomitant]
     Indication: CONSTIPATION
     Route: 065
     Dates: start: 20120420
  17. DIAZEPAM [Concomitant]
     Indication: SEDATION
     Route: 065
     Dates: start: 20120424
  18. FLUID THERAPY [Concomitant]
     Indication: FLUID REPLACEMENT
     Route: 042
     Dates: start: 20120417, end: 20120419
  19. DIHYDROCODEINE [Concomitant]
     Indication: PAIN MANAGEMENT
     Route: 065
     Dates: start: 20120414, end: 20120415
  20. ONDANSETRON [Concomitant]
     Indication: NAUSEA
     Route: 042
     Dates: start: 20120414, end: 20120414
  21. LEVOMEPROMAZINE [Concomitant]
     Indication: VOMITING
     Route: 042
     Dates: start: 20120419, end: 20120419

REACTIONS (3)
  - Electrocardiogram T wave inversion [Recovered/Resolved]
  - Sinus arrhythmia [Recovered/Resolved]
  - Dyskinesia [Recovered/Resolved]
